FAERS Safety Report 11368729 (Version 1)
Quarter: 2015Q3

REPORT INFORMATION
  Report Type: Spontaneous
  Country: US (occurrence: None)
  Receive Date: 20150811
  Receipt Date: 20150811
  Transmission Date: 20151125
  Serious: No
  Sender: FDA-Public Use
  Company Number: None

PATIENT
  Sex: Male

DRUGS (1)
  1. CLONIDINE. [Suspect]
     Active Substance: CLONIDINE

REACTIONS (7)
  - Speech disorder [None]
  - Heart rate decreased [None]
  - Somnolence [None]
  - Oedema peripheral [None]
  - Gait disturbance [None]
  - Chest pain [None]
  - Pain [None]
